FAERS Safety Report 5006734-2 (Version None)
Quarter: 2006Q2

REPORT INFORMATION
  Report Type: 
  Country: None (occurrence: None)
  Receive Date: 20060516
  Receipt Date: 20060510
  Transmission Date: 20061013
  Serious: Yes (Other)
  Sender: FDA-Public Use
  Company Number: 0600136US

PATIENT
  Sex: 0

DRUGS (1)
  1. ALESION SYRUP (EPINASTINE HYDROCHLORIDE) SYRUP [Suspect]

REACTIONS (1)
  - CONVULSION [None]
